FAERS Safety Report 23544611 (Version 1)
Quarter: 2024Q1

REPORT INFORMATION
  Report Type: Spontaneous
  Country: US (occurrence: US)
  Receive Date: 20240220
  Receipt Date: 20240220
  Transmission Date: 20240410
  Serious: No
  Sender: FDA-Public Use
  Company Number: US-SA-SAC20240216001170

PATIENT
  Sex: Male

DRUGS (2)
  1. DUPIXENT [Suspect]
     Active Substance: DUPILUMAB
     Indication: Dermatitis atopic
     Dosage: UNK
     Route: 058
  2. DUPIXENT [Suspect]
     Active Substance: DUPILUMAB
     Indication: Idiopathic urticaria

REACTIONS (9)
  - Muscle spasms [Recovering/Resolving]
  - Sciatica [Unknown]
  - Trigger points [Unknown]
  - Anal incontinence [Unknown]
  - Pain [Unknown]
  - Injury [Unknown]
  - Product use in unapproved indication [Unknown]
  - Arthralgia [Recovering/Resolving]
  - Condition aggravated [Unknown]
